FAERS Safety Report 16972628 (Version 1)
Quarter: 2019Q4

REPORT INFORMATION
  Report Type: Spontaneous
  Country: AR (occurrence: AR)
  Receive Date: 20191030
  Receipt Date: 20191030
  Transmission Date: 20200122
  Serious: Yes (Other)
  Sender: FDA-Public Use
  Company Number: AR-AMGEN-ARGSP2019178954

PATIENT
  Age: 74 Year
  Sex: Female

DRUGS (1)
  1. ENBREL [Suspect]
     Active Substance: ETANERCEPT
     Indication: RHEUMATOID ARTHRITIS
     Dosage: 50 MG, WEEKLY
     Route: 065
     Dates: start: 20071210, end: 201909

REACTIONS (5)
  - Intentional dose omission [Recovering/Resolving]
  - Asthenia [Recovering/Resolving]
  - Appendicitis [Unknown]
  - Underweight [Recovering/Resolving]
  - Fear [Recovering/Resolving]

NARRATIVE: CASE EVENT DATE: 201909
